FAERS Safety Report 7850521-4 (Version None)
Quarter: 2011Q4

REPORT INFORMATION
  Report Type: 
  Country: None (occurrence: None)
  Receive Date: 20111026
  Receipt Date: 20111026
  Transmission Date: 20120403
  Serious: Yes (Hospitalization)
  Sender: FDA-Public Use
  Company Number: None

PATIENT
  Age: 62 Year
  Sex: Male
  Weight: 88.45 kg

DRUGS (1)
  1. CUBICIN [Suspect]
     Indication: OSTEOMYELITIS
     Dosage: 450MG
     Route: 040
     Dates: start: 20110921, end: 20111017

REACTIONS (4)
  - LUNG INFILTRATION [None]
  - MALAISE [None]
  - PYREXIA [None]
  - COUGH [None]
